FAERS Safety Report 9525260 (Version 2)
Quarter: 2013Q3

REPORT INFORMATION
  Report Type: Spontaneous
  Country: ES (occurrence: ES)
  Receive Date: 20130916
  Receipt Date: 20130916
  Transmission Date: 20140515
  Serious: Yes (Other)
  Sender: FDA-Public Use
  Company Number: ES-BANPHARM-20131672

PATIENT
  Age: 66 Year
  Sex: Female

DRUGS (7)
  1. AMANTADINE UNKNOWN PRODUCT [Suspect]
     Indication: PARKINSON^S DISEASE
     Dosage: 200 MG, QD,
  2. RASAGILINE [Suspect]
     Dosage: 1 MG, QD,
  3. LEVODOPA [Suspect]
     Indication: PARKINSON^S DISEASE
     Dosage: 800 MG, QD,
  4. CONTROLLED-RELEASE LEVODOPA AND CARBIDOPA [Suspect]
     Indication: PARKINSON^S DISEASE
     Dosage: QHS,
  5. DULOXETINE [Suspect]
     Indication: DEPRESSION
     Dosage: 90 MG, QD,
  6. CARBIDOPA [Concomitant]
  7. ENTACAPONE [Concomitant]
     Dosage: 300 MG, QD,

REACTIONS (2)
  - Serotonin syndrome [Unknown]
  - Drug interaction [Unknown]
